FAERS Safety Report 7565068-2 (Version None)
Quarter: 2011Q2

REPORT INFORMATION
  Report Type: 
  Country: None (occurrence: None)
  Receive Date: 20110622
  Receipt Date: 20110531
  Transmission Date: 20111010
  Serious: Yes (Death)
  Sender: FDA-Public Use
  Company Number: US-MYLANLABS-2011S1008806

PATIENT
  Age: 46 Year
  Sex: Female

DRUGS (3)
  1. ANTIDEPRESSANTS [Concomitant]
  2. ORAL ANTIDIABETICS [Concomitant]
  3. CLOZAPINE [Suspect]
     Route: 048
     Dates: start: 20070201

REACTIONS (1)
  - DEATH [None]
